FAERS Safety Report 21059115 (Version 1)
Quarter: 2022Q3

REPORT INFORMATION
  Report Type: Spontaneous
  Country: US (occurrence: US)
  Receive Date: 20220708
  Receipt Date: 20220708
  Transmission Date: 20221027
  Serious: Yes (Hospitalization, Other)
  Sender: FDA-Public Use
  Company Number: US-BRISTOL-MYERS SQUIBB COMPANY-2022-063208

PATIENT
  Age: 79 Year
  Sex: Female
  Weight: 72.5 kg

DRUGS (8)
  1. REVLIMID [Suspect]
     Active Substance: LENALIDOMIDE
     Indication: Plasma cell myeloma
     Dosage: DOSE : (1) CAPSULE;     FREQ : DAILY FOR 21 DAYS OFF 7 DAYS
     Route: 048
  2. DILANTIN [Concomitant]
     Active Substance: PHENYTOIN
     Indication: Product used for unknown indication
     Dosage: 100MG (4) TIMES A DAY
  3. PROPRANOLOL [Concomitant]
     Active Substance: PROPRANOLOL HYDROCHLORIDE
     Dosage: 20MG 1 TABLET? THREE TIMES DAILY
  4. PMS ESOMEPRAZOLE DR [Concomitant]
     Indication: Product used for unknown indication
     Dosage: ESOMEPRAZOLE DR 40MG 1? CAPSULE BY MOUTH IN MORNING
     Route: 048
  5. CITALOPRAM HYDROBROMIDE [Concomitant]
     Active Substance: CITALOPRAM HYDROBROMIDE
     Indication: Product used for unknown indication
     Dosage: 40MG 1 TABLET DAILY
  6. LOSARTAN [Concomitant]
     Active Substance: LOSARTAN
     Indication: Product used for unknown indication
     Dosage: 25MG TABLET TWICE? DAILY
  7. JANTOVEN [Concomitant]
     Active Substance: WARFARIN SODIUM
     Indication: Product used for unknown indication
     Dosage: 5MG MONDAY,? WEDNESDAY, FRIDAY,? SATURDAY, AND SUNDAY
  8. JANTOVEN [Concomitant]
     Active Substance: WARFARIN SODIUM
     Dosage: 2.5MG 1 TABLET ON? TUESDAY AND THURSDAY

REACTIONS (5)
  - Nasopharyngitis [Unknown]
  - Peripheral swelling [Unknown]
  - Myocardial infarction [Unknown]
  - Diabetes mellitus [Unknown]
  - Neck pain [Unknown]
